FAERS Safety Report 5081119-1 (Version None)
Quarter: 2006Q3

REPORT INFORMATION
  Report Type: 
  Country: None (occurrence: None)
  Receive Date: 20060816
  Receipt Date: 20060711
  Transmission Date: 20061208
  Serious: Yes (Death, Hospitalization)
  Sender: FDA-Public Use
  Company Number: UA-BRISTOL-MYERS SQUIBB COMPANY-13437819

PATIENT
  Age: 54 Year
  Sex: Female

DRUGS (7)
  1. CISPLATIN [Suspect]
     Indication: GASTRIC CANCER STAGE IV
     Route: 042
     Dates: start: 20060531, end: 20060531
  2. TS-1 [Suspect]
     Indication: GASTRIC CANCER STAGE IV
     Route: 048
     Dates: start: 20060531, end: 20060614
  3. ONDANSETRON HCL [Concomitant]
     Indication: PREMEDICATION
     Route: 042
     Dates: start: 20060531, end: 20060531
  4. CLEMASTINE [Concomitant]
     Indication: PREMEDICATION
     Route: 042
     Dates: start: 20060531, end: 20060531
  5. DEXAMETHASONE [Concomitant]
     Indication: PREMEDICATION
     Route: 042
     Dates: start: 20060531, end: 20060531
  6. FUROSEMIDE [Concomitant]
     Route: 042
     Dates: start: 20060531, end: 20060531
  7. LOPERAMIDE [Concomitant]
     Route: 048
     Dates: start: 20060611, end: 20060614

REACTIONS (1)
  - BONE MARROW FAILURE [None]
